FAERS Safety Report 24705065 (Version 1)
Quarter: 2024Q4

REPORT INFORMATION
  Report Type: Report from Study
  Country: US (occurrence: US)
  Receive Date: 20241206
  Receipt Date: 20241206
  Transmission Date: 20250114
  Serious: Yes (Other)
  Sender: GILEAD
  Company Number: US-GILEAD-2024-0696065

PATIENT
  Age: 25 Year

DRUGS (6)
  1. AZTREONAM LYSINE [Suspect]
     Active Substance: AZTREONAM LYSINE
     Indication: Cystic fibrosis
     Dosage: 1 ML, TID, INHALE 1 ML SOLUTION BY NEBULIZER AS DIRECTED THREE TIMES DAILY. ALTERNATE 28 DAYS ON/28
     Route: 055
     Dates: start: 20231014
  2. REMERON [Concomitant]
     Active Substance: MIRTAZAPINE
     Dosage: 30 MG
  3. AMLODIPINE [Concomitant]
     Active Substance: AMLODIPINE BESYLATE
     Dosage: 50 MG
  4. DULOXETINE [Concomitant]
     Active Substance: DULOXETINE
     Dosage: 30 MG
  5. DOXYCYCLINE HYCLATE [Concomitant]
     Active Substance: DOXYCYCLINE HYCLATE
     Dosage: 100 MG
  6. CIPROFLOXACIN [Concomitant]
     Active Substance: CIPROFLOXACIN

REACTIONS (8)
  - Cystic fibrosis [Unknown]
  - Sleep disorder [Unknown]
  - Dyspnoea [Unknown]
  - Exercise tolerance decreased [Unknown]
  - Nasal inflammation [Unknown]
  - Cough [Unknown]
  - Wheezing [Unknown]
  - Loss of personal independence in daily activities [Unknown]
